FAERS Safety Report 22352216 (Version 1)
Quarter: 2023Q2

REPORT INFORMATION
  Report Type: Spontaneous
  Country: JP (occurrence: JP)
  Receive Date: 20230522
  Receipt Date: 20230522
  Transmission Date: 20230721
  Serious: Yes (Other)
  Sender: FDA-Public Use
  Company Number: JP-MLMSERVICE-20230504-4271811-1

PATIENT
  Age: 73 Year
  Sex: Male

DRUGS (15)
  1. DEXAMETHASONE [Suspect]
     Active Substance: DEXAMETHASONE
     Indication: Angiocentric lymphoma
     Dosage: ON DAY 2-4, 40 MG/BODY, 3 COURSE OF 50% SMILE THERAPY
     Route: 065
     Dates: start: 2022, end: 2022
  2. IFOSFAMIDE [Suspect]
     Active Substance: IFOSFAMIDE
     Indication: Angiocentric lymphoma
     Dosage: ON DAY 2-4, 3 COURSE OF 50% SMILE THERAPY
     Route: 065
     Dates: start: 2022, end: 2022
  3. ETOPOSIDE [Suspect]
     Active Substance: ETOPOSIDE
     Indication: Angiocentric lymphoma
     Dosage: ON DAY 2-4
     Route: 065
     Dates: start: 2022, end: 2022
  4. METHOTREXATE [Suspect]
     Active Substance: METHOTREXATE
     Indication: Angiocentric lymphoma
     Dosage: ON DAY 1,1G/M2, 3 COURSE OF 50% SMILE THERAPY
     Route: 065
     Dates: start: 2022, end: 2022
  5. ASPARAGINASE [Suspect]
     Active Substance: ASPARAGINASE
     Indication: Angiocentric lymphoma
     Dosage: ON DAYS 8, 10, 12, 14, 16, 18, AND 20: 3000 U/M2, 3 COURSE OF 50% SMILE THERAPY
     Route: 065
     Dates: start: 2022, end: 2022
  6. TOPIROXOSTAT [Concomitant]
     Active Substance: TOPIROXOSTAT
     Indication: Product used for unknown indication
  7. LANSOPRAZOLE [Concomitant]
     Active Substance: LANSOPRAZOLE
     Indication: Product used for unknown indication
  8. WARFARIN [Concomitant]
     Active Substance: WARFARIN
     Indication: Product used for unknown indication
  9. NICORANDIL [Concomitant]
     Active Substance: NICORANDIL
     Indication: Product used for unknown indication
  10. CLOPIDOGREL [Concomitant]
     Active Substance: CLOPIDOGREL BISULFATE
     Indication: Product used for unknown indication
  11. CARVEDILOL [Concomitant]
     Active Substance: CARVEDILOL
     Indication: Product used for unknown indication
  12. ROSUVASTATIN [Concomitant]
     Active Substance: ROSUVASTATIN
     Indication: Product used for unknown indication
  13. ENALAPRIL [Concomitant]
     Active Substance: ENALAPRIL
     Indication: Product used for unknown indication
  14. AMLODIPINE [Concomitant]
     Active Substance: AMLODIPINE BESYLATE
     Indication: Product used for unknown indication
  15. AZULENE [Concomitant]
     Active Substance: AZULENE
     Indication: Skin ulcer
     Route: 061
     Dates: start: 202111

REACTIONS (5)
  - Renal failure [Unknown]
  - Drug clearance decreased [Unknown]
  - Gastric ulcer haemorrhage [Recovered/Resolved]
  - Therapy partial responder [Unknown]
  - Decreased appetite [Unknown]

NARRATIVE: CASE EVENT DATE: 20220101
